FAERS Safety Report 8085008 (Version 4)
Quarter: 2014Q2

REPORT INFORMATION
  Report Type: Spontaneous
  Country: JP (occurrence: JP)
  Receive Date: 20110810
  Receipt Date: 20140430
  Transmission Date: 20141212
  Serious: Yes (Hospitalization)
  Sender: FDA-Public Use
  Company Number: JP-ASTRAZENECA-2011SE47429

PATIENT
  Age: 38 Year
  Sex: Female

DRUGS (4)
  1. BLOPRESS [Suspect]
     Indication: PROPHYLAXIS
     Route: 048
     Dates: start: 2008, end: 20110731
  2. TACROLIMUS [Concomitant]
     Route: 065
     Dates: start: 2008
  3. AZULFIDINE [Concomitant]
     Route: 048
     Dates: start: 2008
  4. PREDONINE [Concomitant]
     Route: 065
     Dates: start: 2008

REACTIONS (2)
  - Oligohydramnios [Recovered/Resolved]
  - Exposure during pregnancy [Recovered/Resolved]
